FAERS Safety Report 7775031-4 (Version None)
Quarter: 2011Q3

REPORT INFORMATION
  Report Type: 
  Country: None (occurrence: None)
  Receive Date: 20110923
  Receipt Date: 20110912
  Transmission Date: 20111222
  Serious: Yes (Death)
  Sender: FDA-Public Use
  Company Number: ZA-ELI_LILLY_AND_COMPANY-ZA201109004498

PATIENT
  Age: 62 Year
  Sex: Female

DRUGS (2)
  1. CARBILEV [Concomitant]
     Indication: PARKINSON'S DISEASE
  2. CYMBALTA [Suspect]
     Indication: DEPRESSION
     Dosage: 60 MG, UNKNOWN
     Route: 048

REACTIONS (1)
  - DEATH [None]
